FAERS Safety Report 5466972-1 (Version None)
Quarter: 2007Q3

REPORT INFORMATION
  Report Type: 
  Country: None (occurrence: None)
  Receive Date: 20070920
  Receipt Date: 20070823
  Transmission Date: 20080115
  Serious: Yes (Life-Threatening)
  Sender: FDA-Public Use
  Company Number: 805#1#2007-00052

PATIENT
  Age: 65 Year
  Sex: Male

DRUGS (6)
  1. ALPROSTADIL [Suspect]
     Indication: SKIN ULCER
     Dosage: 80 MCG; INTRAVENOUS DRIP
     Route: 041
     Dates: start: 20070801, end: 20070814
  2. ALPROSTADIL [Suspect]
     Indication: SKIN ULCER
     Dosage: 80 MCG; INTRAVENOUS DRIP
     Route: 041
     Dates: start: 20070701, end: 20070814
  3. ACETYLSALICYLIC ACID SRT [Suspect]
     Indication: ATRIAL FIBRILLATION
     Dosage: 100 MG,ORAL
     Route: 048
     Dates: start: 20070201, end: 20070814
  4. UNASYN [Concomitant]
  5. FLOMOXEF SODIUM (FLOMOXEF SODIUM) [Concomitant]
  6. FAMOTIDINE [Concomitant]

REACTIONS (8)
  - ARRHYTHMIA [None]
  - ATRIAL FIBRILLATION [None]
  - GAIT DISTURBANCE [None]
  - GASTROINTESTINAL HAEMORRHAGE [None]
  - HAEMATEMESIS [None]
  - PNEUMONIA [None]
  - RESPIRATORY ARREST [None]
  - SHOCK HAEMORRHAGIC [None]
